FAERS Safety Report 4960713-X (Version None)
Quarter: 2006Q2

REPORT INFORMATION
  Report Type: 
  Country: None (occurrence: None)
  Receive Date: 20060403
  Receipt Date: 20060327
  Transmission Date: 20061013
  Serious: Yes (Death)
  Sender: FDA-Public Use
  Company Number: 2006AC00578

PATIENT
  Age: 15 Year

DRUGS (3)
  1. QUETIAPINE [Suspect]
  2. METHYLENEDIOXYMETHAMPHETAMINE [Suspect]
  3. HEROIN [Suspect]

REACTIONS (2)
  - DRUG ABUSER [None]
  - INTENTIONAL OVERDOSE [None]
